FAERS Safety Report 25490374 (Version 1)
Quarter: 2025Q2

REPORT INFORMATION
  Report Type: Spontaneous
  Country: ES (occurrence: ES)
  Receive Date: 20250628
  Receipt Date: 20250628
  Transmission Date: 20250716
  Serious: Yes (Other)
  Sender: AMGEN
  Company Number: ES-AMGEN-ESPSP2025121955

PATIENT

DRUGS (3)
  1. ADALIMUMAB [Suspect]
     Active Substance: ADALIMUMAB
     Indication: Colitis ulcerative
     Route: 065
  2. ADALIMUMAB [Suspect]
     Active Substance: ADALIMUMAB
     Indication: Crohn^s disease
  3. ADALIMUMAB [Suspect]
     Active Substance: ADALIMUMAB
     Indication: Inflammatory bowel disease

REACTIONS (15)
  - Crohn^s disease [Unknown]
  - Tuberculosis [Unknown]
  - Colitis ulcerative [Unknown]
  - Acute myeloid leukaemia [Unknown]
  - Odontogenic cyst [Unknown]
  - Skin lesion [Unknown]
  - Diarrhoea [Unknown]
  - Infusion related reaction [Unknown]
  - Arthralgia [Unknown]
  - Infection [Unknown]
  - Anaemia [Unknown]
  - Therapy non-responder [Unknown]
  - Herpes zoster [Unknown]
  - Abdominal pain [Unknown]
  - Loss of therapeutic response [Unknown]
